FAERS Safety Report 8189282-0 (Version None)
Quarter: 2012Q1

REPORT INFORMATION
  Report Type: 
  Country: None (occurrence: None)
  Receive Date: 20120307
  Receipt Date: 20120227
  Transmission Date: 20120608
  Serious: Yes (Other)
  Sender: FDA-Public Use
  Company Number: NL-TEVA-307589ISR

PATIENT
  Sex: Male

DRUGS (3)
  1. FLUOXETINE [Suspect]
     Dates: start: 20110201, end: 20110101
  2. FLUOXETINE [Suspect]
     Dates: start: 20080101, end: 20110201
  3. ASCORBIC ACID [Concomitant]
     Dates: end: 20110201

REACTIONS (2)
  - WALKING DISABILITY [None]
  - MULTIPLE SCLEROSIS RELAPSE [None]
